FAERS Safety Report 5782047-6 (Version None)
Quarter: 2008Q2

REPORT INFORMATION
  Report Type: 
  Country: None (occurrence: None)
  Receive Date: 20080623
  Receipt Date: 20080611
  Transmission Date: 20081010
  Serious: Yes (Hospitalization)
  Sender: FDA-Public Use
  Company Number: NZ-MERCK-0805NZL00017

PATIENT
  Age: 77 Year
  Sex: Male

DRUGS (5)
  1. ZOCOR [Suspect]
     Indication: BLOOD CHOLESTEROL INCREASED
     Route: 048
     Dates: start: 20010101, end: 20070901
  2. ZOCOR [Suspect]
     Route: 048
     Dates: start: 20071001
  3. ZOCOR [Suspect]
     Route: 048
     Dates: start: 20071101
  4. ZOCOR [Suspect]
     Route: 048
     Dates: start: 20080501
  5. ZOCOR [Suspect]
     Route: 048

REACTIONS (11)
  - CARDIAC OPERATION [None]
  - CONSTIPATION [None]
  - DIZZINESS [None]
  - DYSPEPSIA [None]
  - HEADACHE [None]
  - MUSCULAR WEAKNESS [None]
  - NAUSEA [None]
  - SENSORY DISTURBANCE [None]
  - STOMACH DISCOMFORT [None]
  - TOOTHACHE [None]
  - WRONG TECHNIQUE IN DRUG USAGE PROCESS [None]
